FAERS Safety Report 7350893-3 (Version None)
Quarter: 2011Q1

REPORT INFORMATION
  Report Type: 
  Country: None (occurrence: None)
  Receive Date: 20110225
  Receipt Date: 20100427
  Transmission Date: 20110831
  Serious: Yes (Other)
  Sender: FDA-Public Use
  Company Number: DSA_43070_2010

PATIENT
  Sex: Female

DRUGS (3)
  1. SEPTOCAINE /01526801/ [Concomitant]
  2. RESTYLANE /00567501/ (NOT SPECIFIED) [Suspect]
     Indication: PRODUCT USED FOR UNKNOWN INDICATION
     Dosage: (0.4 ML), (DF)
     Dates: start: 20100407
  3. ENALAPRIL MALEATE [Suspect]
     Indication: PRODUCT USED FOR UNKNOWN INDICATION
     Dosage: (DF)
     Dates: start: 20100406

REACTIONS (2)
  - LIP SWELLING [None]
  - SWELLING FACE [None]
